FAERS Safety Report 9384432 (Version 3)
Quarter: 2013Q4

REPORT INFORMATION
  Report Type: Spontaneous
  Country: FR (occurrence: FR)
  Receive Date: 20130705
  Receipt Date: 20131014
  Transmission Date: 20140711
  Serious: Yes (Hospitalization)
  Sender: FDA-Public Use
  Company Number: FR-009507513-1306FRA014258

PATIENT
  Age: 78 Year
  Sex: Female

DRUGS (8)
  1. NORSET [Suspect]
     Indication: PRODUCT USED FOR UNKNOWN INDICATION
     Dosage: 15 MG, QD
     Route: 048
     Dates: start: 201304, end: 20130522
  2. NORSET [Suspect]
     Dosage: 30 MG, QD
     Route: 048
     Dates: start: 20130523
  3. XANAX [Suspect]
     Indication: PRODUCT USED FOR UNKNOWN INDICATION
     Dosage: 1 G, QD
     Route: 048
  4. XANAX [Suspect]
     Dosage: 0.25 MG, QPM
     Route: 048
     Dates: start: 20130523
  5. LYRICA [Suspect]
     Indication: PRODUCT USED FOR UNKNOWN INDICATION
     Dosage: 1 DF, BID
     Route: 048
  6. MOVICOL [Concomitant]
     Dosage: 1 DF, BID
     Route: 048
  7. ACETAMINOPHEN [Concomitant]
     Dosage: UNK
     Route: 048
  8. LANSOYL [Concomitant]
     Dosage: 1 DF, QD
     Route: 048

REACTIONS (1)
  - Confusional state [Recovered/Resolved]
